FAERS Safety Report 14118393 (Version 2)
Quarter: 2017Q4

REPORT INFORMATION
  Report Type: Spontaneous
  Country: US (occurrence: US)
  Receive Date: 20171024
  Receipt Date: 20171113
  Transmission Date: 20180321
  Serious: Yes (Other)
  Sender: FDA-Public Use
  Company Number: US-BIOGEN-2017BI00474799

PATIENT
  Sex: Male

DRUGS (4)
  1. AMPYRA [Suspect]
     Active Substance: DALFAMPRIDINE
     Indication: GAIT DISTURBANCE
     Route: 050
  2. TYSABRI [Concomitant]
     Active Substance: NATALIZUMAB
     Indication: ISCHAEMIC STROKE
     Route: 003
  3. AVONEX [Suspect]
     Active Substance: INTERFERON BETA-1A
     Indication: MULTIPLE SCLEROSIS
     Route: 001
  4. TYSABRI [Interacting]
     Active Substance: NATALIZUMAB
     Route: 008

REACTIONS (2)
  - Pyrexia [Recovered/Resolved]
  - Nasopharyngitis [Unknown]
